FAERS Safety Report 4363922-6 (Version None)
Quarter: 2004Q2

REPORT INFORMATION
  Report Type: 
  Country: None (occurrence: None)
  Receive Date: 20040518
  Receipt Date: 20040408
  Transmission Date: 20050107
  Serious: No
  Sender: FDA-Public Use
  Company Number: PHEH2004US04001

PATIENT
  Age: 71 Year
  Sex: Male

DRUGS (4)
  1. GLEEVEC [Suspect]
     Indication: POLYCYTHAEMIA VERA
     Dosage: 400 MG, QD, ORAL
     Route: 048
     Dates: start: 20040101, end: 20040328
  2. HYDROXYUREA [Concomitant]
  3. DIURETICS [Concomitant]
  4. ANTIHYPERTENSIVE DRUGS [Concomitant]

REACTIONS (11)
  - ABASIA [None]
  - CELLULITIS [None]
  - CHILLS [None]
  - DECREASED APPETITE [None]
  - DYSENTERY [None]
  - EYE SWELLING [None]
  - MYALGIA [None]
  - NAUSEA [None]
  - PAIN IN EXTREMITY [None]
  - SWEATING FEVER [None]
  - TREMOR [None]
